FAERS Safety Report 21510046 (Version 1)
Quarter: 2022Q4

REPORT INFORMATION
  Report Type: Spontaneous
  Country: DE (occurrence: DE)
  Receive Date: 20221026
  Receipt Date: 20221026
  Transmission Date: 20230113
  Serious: Yes (Other)
  Sender: FDA-Public Use
  Company Number: DE-GILEAD-2022-0602616

PATIENT
  Age: 47 Year
  Sex: Female

DRUGS (4)
  1. SACITUZUMAB GOVITECAN-HZIY [Suspect]
     Active Substance: SACITUZUMAB GOVITECAN-HZIY
     Indication: Breast cancer
     Dosage: UNK
     Route: 065
     Dates: start: 202106, end: 202204
  2. BEVACIZUMAB [Concomitant]
     Active Substance: BEVACIZUMAB
     Indication: Product used for unknown indication
  3. ERLOTINIB [Concomitant]
     Active Substance: ERLOTINIB
  4. ERIBULIN [Concomitant]
     Active Substance: ERIBULIN
     Dosage: UNK
     Dates: start: 202204, end: 202206

REACTIONS (3)
  - Disease progression [Unknown]
  - Febrile neutropenia [Unknown]
  - Diarrhoea [Unknown]
